FAERS Safety Report 18537677 (Version 1)
Quarter: 2020Q4

REPORT INFORMATION
  Report Type: Spontaneous
  Country: GB (occurrence: GB)
  Receive Date: 20201124
  Receipt Date: 20201124
  Transmission Date: 20210114
  Serious: Yes (Hospitalization)
  Sender: FDA-Public Use
  Company Number: GB-ROCHE-2717456

PATIENT
  Age: 38 Year
  Sex: Male

DRUGS (3)
  1. HEPARIN [Suspect]
     Active Substance: HEPARIN SODIUM
     Indication: PULMONARY EMBOLISM
     Route: 065
     Dates: start: 20200624
  2. ALTEPLASE. [Suspect]
     Active Substance: ALTEPLASE
     Indication: PULMONARY EMBOLISM
     Route: 065
     Dates: start: 20200624, end: 20200624
  3. WARFARIN [Concomitant]
     Active Substance: WARFARIN
     Indication: DEEP VEIN THROMBOSIS
     Route: 065

REACTIONS (3)
  - Loss of consciousness [Unknown]
  - Vision blurred [Recovered/Resolved]
  - Partial seizures [Recovered/Resolved]
